FAERS Safety Report 7953759-0 (Version None)
Quarter: 2011Q4

REPORT INFORMATION
  Report Type: 
  Country: None (occurrence: None)
  Receive Date: 20111129
  Receipt Date: 20111117
  Transmission Date: 20120403
  Serious: Yes (Hospitalization)
  Sender: FDA-Public Use
  Company Number: 2011SP046419

PATIENT
  Age: 38 Year
  Sex: Female

DRUGS (7)
  1. ZYPREXA [Concomitant]
  2. SAPHRIS [Suspect]
     Indication: SCHIZOPHRENIA
     Dosage: 10 MG;BID;SL
     Route: 060
     Dates: start: 20110711, end: 20110912
  3. SAPHRIS [Suspect]
     Indication: SCHIZOAFFECTIVE DISORDER
     Dosage: 10 MG;BID;SL
     Route: 060
     Dates: start: 20110711, end: 20110912
  4. SAPHRIS [Suspect]
     Indication: PSYCHOTIC DISORDER
     Dosage: 10 MG;BID;SL
     Route: 060
     Dates: start: 20110711, end: 20110912
  5. SAPHRIS [Suspect]
     Indication: SCHIZOPHRENIA
     Dosage: 10 MG;BID;SL
     Route: 060
     Dates: start: 20110919, end: 20111003
  6. SAPHRIS [Suspect]
     Indication: SCHIZOAFFECTIVE DISORDER
     Dosage: 10 MG;BID;SL
     Route: 060
     Dates: start: 20110919, end: 20111003
  7. SAPHRIS [Suspect]
     Indication: PSYCHOTIC DISORDER
     Dosage: 10 MG;BID;SL
     Route: 060
     Dates: start: 20110919, end: 20111003

REACTIONS (4)
  - CONDITION AGGRAVATED [None]
  - HYPOAESTHESIA ORAL [None]
  - PSYCHOTIC DISORDER [None]
  - WEIGHT INCREASED [None]
